FAERS Safety Report 4955783-9 (Version None)
Quarter: 2006Q1

REPORT INFORMATION
  Report Type: 
  Country: None (occurrence: None)
  Receive Date: 20060127
  Receipt Date: 20050128
  Transmission Date: 20060701
  Serious: Yes (Other)
  Sender: FDA-Public Use
  Company Number: 05-01-0126

PATIENT
  Age: 55 Year
  Sex: Male

DRUGS (3)
  1. CLOZAPINE [Suspect]
     Indication: SCHIZOPHRENIA, PARANOID TYPE
     Dosage: 450 MG QD, ORAL
     Route: 048
     Dates: start: 19990101, end: 20050125
  2. CELEXA [Concomitant]
  3. ATIVAN [Concomitant]

REACTIONS (1)
  - NEUTROPENIA [None]
